FAERS Safety Report 6102193-7 (Version None)
Quarter: 2009Q1

REPORT INFORMATION
  Report Type: 
  Country: None (occurrence: None)
  Receive Date: 20090303
  Receipt Date: 20090303
  Transmission Date: 20090719
  Serious: No
  Sender: FDA-Public Use
  Company Number: None

PATIENT

DRUGS (1)
  1. WARFARIN [Suspect]

REACTIONS (4)
  - ABNORMAL CLOTTING FACTOR [None]
  - CHEST DISCOMFORT [None]
  - HEART RATE INCREASED [None]
  - PRODUCT QUALITY ISSUE [None]
